FAERS Safety Report 16358208 (Version 1)
Quarter: 2019Q2

REPORT INFORMATION
  Report Type: Spontaneous
  Country: IT (occurrence: IT)
  Receive Date: 20190527
  Receipt Date: 20190527
  Transmission Date: 20190711
  Serious: Yes (Hospitalization)
  Sender: FDA-Public Use
  Company Number: IT-TEVA-2019-IT-1055238

PATIENT
  Age: 50 Year
  Sex: Female

DRUGS (1)
  1. IBUPROFEN. [Suspect]
     Active Substance: IBUPROFEN
     Indication: MALAISE
     Route: 065
     Dates: start: 20100504, end: 20100504

REACTIONS (1)
  - Acute generalised exanthematous pustulosis [Unknown]

NARRATIVE: CASE EVENT DATE: 20100506
